FAERS Safety Report 5868961-1 (Version None)
Quarter: 2008Q3

REPORT INFORMATION
  Report Type: 
  Country: None (occurrence: None)
  Receive Date: 20080902
  Receipt Date: 20080902
  Transmission Date: 20090109
  Serious: Yes (Life-Threatening, Hospitalization)
  Sender: FDA-Public Use
  Company Number: None

PATIENT
  Sex: Male
  Weight: 65.7716 kg

DRUGS (2)
  1. BEVACIZUMAB 15 MG/ KG IV (GENENTECH) [Suspect]
     Indication: OESOPHAGEAL CARCINOMA
     Dosage: 987 MG IV
     Route: 042
     Dates: start: 20080723, end: 20080730
  2. ERLOTINIB 100MG PO (GENENTECH) [Suspect]
     Indication: OESOPHAGEAL CARCINOMA
     Dosage: 100 MG
     Dates: start: 20080723, end: 20080730

REACTIONS (6)
  - ANOREXIA [None]
  - ATRIAL FLUTTER [None]
  - DEHYDRATION [None]
  - FATIGUE [None]
  - SINUS TACHYCARDIA [None]
  - WEIGHT DECREASED [None]
